FAERS Safety Report 9501847 (Version 1)
Quarter: 2013Q1

REPORT INFORMATION
  Report Type: Spontaneous
  Country: US (occurrence: None)
  Receive Date: 20130107
  Receipt Date: 20130107
  Transmission Date: 20140127
  Serious: No
  Sender: FDA-Public Use
  Company Number: PHEH2012US018286

PATIENT
  Age: 49 Year
  Sex: Female
  Weight: 63.5 kg

DRUGS (6)
  1. GILENYA (FTY) CAPSULE, 0.5 MG [Suspect]
     Indication: MULTIPLE SCLEROSIS
     Dates: start: 20120906
  2. VITAMIN D (ERGOCALCIFEROL) [Concomitant]
  3. VITAMIN B COMPLEX (CALCIUM PANTOTHENATE NICOTINAMIDE, PYRIDOXINE HYDROCHLORIDE, RIBOFLAVIN, THIAMINE HYDROCHLORIDE) [Concomitant]
  4. LANSOPRAZOLE (LANSOPRAZOLE) [Concomitant]
  5. PROZAK (FLUOXETINE HYDROCHLORIDE) [Concomitant]
  6. ATIVAN (LORAZEPAM) [Concomitant]

REACTIONS (5)
  - Sinus congestion [None]
  - Nasal congestion [None]
  - Throat irritation [None]
  - Chest discomfort [None]
  - Nasopharyngitis [None]
